FAERS Safety Report 17108155 (Version 1)
Quarter: 2019Q4

REPORT INFORMATION
  Report Type: Spontaneous
  Country: US (occurrence: US)
  Receive Date: 20191204
  Receipt Date: 20191204
  Transmission Date: 20200122
  Serious: No
  Sender: FDA-Public Use
  Company Number: US-UCBSA-2017046459

PATIENT

DRUGS (1)
  1. TUSSIONEX PENNKINETIC [Suspect]
     Active Substance: CHLORPHENIRAMINE\HYDROCODONE
     Indication: UPPER RESPIRATORY TRACT INFECTION
     Dosage: 1 TSP, 2X/DAY (BID)

REACTIONS (1)
  - Headache [Unknown]
